FAERS Safety Report 15695922 (Version 1)
Quarter: 2018Q4

REPORT INFORMATION
  Report Type: Spontaneous
  Country: DE (occurrence: DE)
  Receive Date: 20181206
  Receipt Date: 20181206
  Transmission Date: 20190205
  Serious: Yes (Hospitalization, Other)
  Sender: FDA-Public Use
  Company Number: DE-SHIRE-DE201823978

PATIENT

DRUGS (9)
  1. HYQVIA [Suspect]
     Active Substance: HUMAN IMMUNOGLOBULIN G\HYALURONIDASE RECOMBINANT HUMAN
     Dosage: 40 G / 400 ML, 1X/2WKS
     Route: 058
     Dates: start: 20171023
  2. HYQVIA [Suspect]
     Active Substance: HUMAN IMMUNOGLOBULIN G\HYALURONIDASE RECOMBINANT HUMAN
     Dosage: 65 G, 1X/2WKS
     Route: 058
     Dates: start: 20180918
  3. HYQVIA [Suspect]
     Active Substance: HUMAN IMMUNOGLOBULIN G\HYALURONIDASE RECOMBINANT HUMAN
     Indication: SYSTEMIC LUPUS ERYTHEMATOSUS
     Dosage: 65 G, 1X/2WKS
     Route: 058
     Dates: start: 201710
  4. HYQVIA [Suspect]
     Active Substance: HUMAN IMMUNOGLOBULIN G\HYALURONIDASE RECOMBINANT HUMAN
     Dosage: 65 G, 1X/2WKS
     Route: 058
     Dates: start: 20171218
  5. HYQVIA [Suspect]
     Active Substance: HUMAN IMMUNOGLOBULIN G\HYALURONIDASE RECOMBINANT HUMAN
     Dosage: 60 G / 600 ML, 1X/2WKS
     Route: 058
     Dates: start: 20171103
  6. HYQVIA [Suspect]
     Active Substance: HUMAN IMMUNOGLOBULIN G\HYALURONIDASE RECOMBINANT HUMAN
     Dosage: 30 G / 300 ML, 1X/WEEK
     Route: 058
     Dates: start: 20171016
  7. HYQVIA [Suspect]
     Active Substance: HUMAN IMMUNOGLOBULIN G\HYALURONIDASE RECOMBINANT HUMAN
     Dosage: 65 G / 650 ML, 1X/2WKS
     Route: 058
     Dates: start: 20171117
  8. HYQVIA [Suspect]
     Active Substance: HUMAN IMMUNOGLOBULIN G\HYALURONIDASE RECOMBINANT HUMAN
     Dosage: 65 G / 650 ML, 1X/2WKS
     Route: 058
     Dates: start: 20171204
  9. HYQVIA [Suspect]
     Active Substance: HUMAN IMMUNOGLOBULIN G\HYALURONIDASE RECOMBINANT HUMAN
     Dosage: 30 G, UNK
     Route: 058
     Dates: start: 20180904

REACTIONS (8)
  - Red blood cell sedimentation rate increased [Unknown]
  - Pancreatitis [Unknown]
  - Albumin urine [Unknown]
  - Butterfly rash [Unknown]
  - Blood creatinine increased [Unknown]
  - Pigmentation disorder [Unknown]
  - Protein urine [Unknown]
  - Blood count abnormal [Unknown]
